FAERS Safety Report 8768565 (Version 1)
Quarter: 2012Q4

REPORT INFORMATION
  Report Type: Report from Study
  Country: DE (occurrence: DE)
  Receive Date: 20120906
  Receipt Date: 20120906
  Transmission Date: 20130627
  Serious: Yes (Death, Life-Threatening)
  Sender: FDA-Public Use
  Company Number: DE-ROCHE-1111893

PATIENT
  Age: 54 Year
  Sex: Male

DRUGS (1)
  1. MABTHERA [Suspect]
     Indication: POST TRANSPLANT LYMPHOPROLIFERATIVE DISORDER
     Route: 042
     Dates: start: 20051221

REACTIONS (3)
  - Cytomegalovirus colitis [Fatal]
  - Sepsis [Fatal]
  - Acute myocardial infarction [Fatal]
